FAERS Safety Report 9790311 (Version 1)
Quarter: 2013Q4

REPORT INFORMATION
  Report Type: Report from Study
  Country: GB (occurrence: GB)
  Receive Date: 20131231
  Receipt Date: 20131231
  Transmission Date: 20140711
  Serious: Yes (Other)
  Sender: FDA-Public Use
  Company Number: GB-JNJFOC-20131215498

PATIENT
  Sex: Male

DRUGS (1)
  1. SIMPONI [Suspect]
     Indication: PRODUCT USED FOR UNKNOWN INDICATION
     Route: 058

REACTIONS (6)
  - Liver disorder [Unknown]
  - Splenomegaly [Unknown]
  - Fibromyalgia [Unknown]
  - Nasopharyngitis [Unknown]
  - Oral candidiasis [Unknown]
  - Mouth ulceration [Unknown]
